FAERS Safety Report 17072451 (Version 1)
Quarter: 2019Q4

REPORT INFORMATION
  Report Type: Spontaneous
  Country: NO (occurrence: NO)
  Receive Date: 20191125
  Receipt Date: 20191125
  Transmission Date: 20200122
  Serious: Yes (Death)
  Sender: FDA-Public Use
  Company Number: NO-009507513-1911NOR006688

PATIENT
  Age: 65 Year
  Sex: Male

DRUGS (4)
  1. KEYTRUDA [Suspect]
     Active Substance: PEMBROLIZUMAB
     Indication: LUNG ADENOCARCINOMA
     Dosage: 200 MG
     Route: 042
     Dates: start: 20190618, end: 20190910
  2. VINORELBINE TARTRATE. [Concomitant]
     Active Substance: VINORELBINE TARTRATE
     Indication: LUNG ADENOCARCINOMA
     Dosage: 45 MG. DOSE REDUCTION LATER ON, DUE TO KIDNEY FAILURE AND NEUTROPHENIA (22,5-34 MG)
     Route: 042
     Dates: start: 20190208, end: 20190424
  3. PEMETREXED DISODIUM [Concomitant]
     Active Substance: PEMETREXED DISODIUM
     Indication: LUNG ADENOCARCINOMA
     Dosage: 663,75 MG
     Route: 042
     Dates: start: 20190618, end: 20190910
  4. CARBOPLATIN ACCORD [Concomitant]
     Active Substance: CARBOPLATIN
     Indication: LUNG ADENOCARCINOMA
     Dosage: 640 MG. DOSE REDUCTION LATER ON, DUE TO KIDNEY FAILURE AND NEUTROPHENIA (235-375 MG)
     Route: 042
     Dates: start: 20190208

REACTIONS (3)
  - Respiratory failure [Fatal]
  - Pneumocystis jirovecii pneumonia [Fatal]
  - Pneumonitis [Fatal]

NARRATIVE: CASE EVENT DATE: 20191017
